FAERS Safety Report 6295578-X (Version None)
Quarter: 2009Q3

REPORT INFORMATION
  Report Type: 
  Country: None (occurrence: None)
  Receive Date: 20090731
  Receipt Date: 20090714
  Transmission Date: 20100115
  Serious: Yes (Other)
  Sender: FDA-Public Use
  Company Number: 2009S1005600

PATIENT
  Sex: Male

DRUGS (6)
  1. PHOSPHOSODA FLAVOR NOT SPECIFIED [Suspect]
     Indication: COLONOSCOPY
     Dosage: ;PO
     Route: 048
     Dates: start: 20061217, end: 20061218
  2. DIOVAN [Concomitant]
  3. HYDROCHLOROTHIAZIDE [Concomitant]
  4. VYTORIN [Concomitant]
  5. GLUCOPHAGE [Concomitant]
  6. SYNTHROID [Concomitant]

REACTIONS (1)
  - RENAL FAILURE ACUTE [None]
